FAERS Safety Report 8976038 (Version 1)
Quarter: 2012Q4

REPORT INFORMATION
  Report Type: Report from Study
  Country: US (occurrence: US)
  Receive Date: 20121220
  Receipt Date: 20121220
  Transmission Date: 20130627
  Serious: Yes (Hospitalization)
  Sender: FDA-Public Use
  Company Number: US-ROCHE-1170419

PATIENT
  Sex: Male
  Weight: 114.41 kg

DRUGS (6)
  1. OMALIZUMAB [Suspect]
     Indication: ASTHMA
     Route: 058
     Dates: start: 20090523
  2. FLONASE [Concomitant]
  3. HYDROXYZINE [Concomitant]
  4. OLOPATADINE HYDROCHLORIDE [Concomitant]
     Route: 065
  5. TRIAMCINOLONE [Concomitant]
     Indication: ECZEMA
     Route: 065
  6. PREDNISONE [Concomitant]
     Route: 065

REACTIONS (2)
  - Pneumonia [Unknown]
  - Asthma [Unknown]
